FAERS Safety Report 20123707 (Version 1)
Quarter: 2021Q4

REPORT INFORMATION
  Report Type: Spontaneous
  Country: CH (occurrence: CH)
  Receive Date: 20211129
  Receipt Date: 20211129
  Transmission Date: 20220303
  Serious: Yes (Other)
  Sender: FDA-Public Use
  Company Number: CH-SUN PHARMACEUTICAL INDUSTRIES LTD-2021RR-316646

PATIENT
  Age: 79 Year
  Sex: Male

DRUGS (3)
  1. PEMETREXED [Suspect]
     Active Substance: PEMETREXED
     Indication: Non-small cell lung cancer
     Dosage: 500 MG/M2 ON DAY 1 AND 21
     Route: 065
     Dates: start: 201804
  2. CARBOPLATIN [Suspect]
     Active Substance: CARBOPLATIN
     Indication: Non-small cell lung cancer
     Dosage: 5MG/ML/MIN (AUC 5) ON DAY 1 AND 21
     Route: 042
     Dates: start: 201804
  3. DENOSUMAB [Concomitant]
     Active Substance: DENOSUMAB
     Indication: Osteolysis
     Dosage: 120 MILLIGRAM
     Route: 058

REACTIONS (1)
  - Metastases to central nervous system [Unknown]
